FAERS Safety Report 7573907-4 (Version None)
Quarter: 2011Q2

REPORT INFORMATION
  Report Type: 
  Country: None (occurrence: None)
  Receive Date: 20110627
  Receipt Date: 20110620
  Transmission Date: 20111010
  Serious: Yes (Hospitalization)
  Sender: FDA-Public Use
  Company Number: B0727186A

PATIENT
  Sex: Male

DRUGS (7)
  1. ATARAX [Concomitant]
     Dosage: 25MG UNKNOWN
     Route: 065
  2. ATACAND [Concomitant]
     Dosage: 16MG UNKNOWN
     Route: 065
  3. SECTRAL [Concomitant]
     Dosage: 200MG UNKNOWN
     Route: 065
  4. PANTOPRAZOLE [Concomitant]
     Route: 065
  5. TRANXENE [Concomitant]
     Dosage: 5MG UNKNOWN
     Route: 065
  6. LAMICTAL [Suspect]
     Indication: BIPOLAR DISORDER
     Route: 048
     Dates: end: 20110503
  7. ASPIRIN [Concomitant]
     Dosage: 75MG UNKNOWN
     Route: 065

REACTIONS (4)
  - SKIN EXFOLIATION [None]
  - OEDEMA [None]
  - RASH MACULAR [None]
  - PRURITUS GENERALISED [None]
